FAERS Safety Report 16632443 (Version 1)
Quarter: 2019Q3

REPORT INFORMATION
  Report Type: Spontaneous
  Country: US (occurrence: US)
  Receive Date: 20190725
  Receipt Date: 20190725
  Transmission Date: 20191004
  Serious: No
  Sender: FDA-Public Use
  Company Number: US-ABBVIE-19S-163-2720675-00

PATIENT
  Age: 66 Year
  Sex: Female

DRUGS (12)
  1. ARMOUR THYROID [Suspect]
     Active Substance: THYROID, PORCINE
     Dosage: 75 MG EVERY OTHER DAY
     Route: 065
  2. ARMOUR THYROID [Suspect]
     Active Substance: THYROID, PORCINE
     Dosage: 30 MG TWICE DAILY (IN THE MORNING AND AT 2:00 PM) MINUS THE EXTRA 15 MG DOSE ON WEDNESDAYS
     Route: 065
  3. MULTIVITAMINS [Concomitant]
     Active Substance: VITAMINS
     Indication: PRODUCT USED FOR UNKNOWN INDICATION
  4. FISH OIL [Concomitant]
     Active Substance: FISH OIL
     Indication: PRODUCT USED FOR UNKNOWN INDICATION
  5. ARMOUR THYROID [Suspect]
     Active Substance: THYROID, PORCINE
     Indication: PRODUCT USED FOR UNKNOWN INDICATION
     Dosage: 60 MG DAILY IN THE MORNINGS PLUS ADDITIONAL 15 MG ON WEDNESDAY
     Route: 065
  6. THYROID POWDER (LEVOTHYROXINE\LIOTHYRONINE) [Suspect]
     Active Substance: LEVOTHYROXINE\LIOTHYRONINE
     Indication: HYPOTHYROIDISM
     Route: 065
     Dates: start: 2011, end: 201811
  7. VITAMIN C [Concomitant]
     Active Substance: ASCORBIC ACID
     Indication: PRODUCT USED FOR UNKNOWN INDICATION
  8. SYNTHROID [Suspect]
     Active Substance: LEVOTHYROXINE SODIUM
     Indication: PRODUCT USED FOR UNKNOWN INDICATION
     Route: 048
  9. THYROID POWDER (LEVOTHYROXINE\LIOTHYRONINE) [Suspect]
     Active Substance: LEVOTHYROXINE\LIOTHYRONINE
     Route: 065
     Dates: start: 2011, end: 201811
  10. ARMOUR THYROID [Suspect]
     Active Substance: THYROID, PORCINE
     Dosage: WENT BACK TO 60 MG DAILY IN THE MORNINGS PLUS ADDITIONAL 15 MG ON WEDNESDAY
     Route: 065
  11. THYROID POWDER (LEVOTHYROXINE\LIOTHYRONINE) [Suspect]
     Active Substance: LEVOTHYROXINE\LIOTHYRONINE
     Route: 065
     Dates: start: 201811
  12. MULTIVITAMINS [Concomitant]
     Active Substance: VITAMINS
     Indication: PRODUCT USED FOR UNKNOWN INDICATION

REACTIONS (9)
  - Feeling abnormal [Unknown]
  - Expired product administered [Unknown]
  - Blood pressure systolic increased [Recovered/Resolved]
  - Product use complaint [Unknown]
  - Blood thyroid stimulating hormone increased [Unknown]
  - Product formulation issue [Unknown]
  - Blood cholesterol increased [Unknown]
  - Dyspnoea [Unknown]
  - Arrhythmia [Recovered/Resolved]

NARRATIVE: CASE EVENT DATE: 2018
